FAERS Safety Report 9001364 (Version 1)
Quarter: 2013Q1

REPORT INFORMATION
  Report Type: Spontaneous
  Country: US (occurrence: US)
  Receive Date: 20130107
  Receipt Date: 20130107
  Transmission Date: 20140127
  Serious: No
  Sender: FDA-Public Use
  Company Number: US-ASTELLAS-2012US002832

PATIENT
  Sex: 0

DRUGS (1)
  1. VAPRISOL [Suspect]
     Indication: PRODUCT USED FOR UNKNOWN INDICATION
     Dosage: 20 MG, TOTAL DOSE
     Route: 040

REACTIONS (1)
  - Drug prescribing error [Unknown]
